FAERS Safety Report 7619289-0 (Version None)
Quarter: 2011Q3

REPORT INFORMATION
  Report Type: 
  Country: None (occurrence: None)
  Receive Date: 20110718
  Receipt Date: 20110711
  Transmission Date: 20111222
  Serious: No
  Sender: FDA-Public Use
  Company Number: US-B.I. PHARMACEUTICALS,INC./RIDGEFIELD-2011-BP-10535BP

PATIENT
  Age: 76 Year
  Sex: Female

DRUGS (8)
  1. VIVELLE ESTROGEN PATCH [Concomitant]
     Indication: MENOPAUSE
     Route: 062
  2. PRADAXA [Suspect]
     Indication: ATRIAL FIBRILLATION
     Dosage: 300 MG
     Route: 048
     Dates: start: 20101201
  3. VIT D [Concomitant]
     Indication: PROPHYLAXIS
     Dosage: 1000 U
     Route: 048
     Dates: start: 20100101
  4. OMEPRAZOLE [Concomitant]
     Indication: GASTROOESOPHAGEAL REFLUX DISEASE
  5. AMITRIPTYLINE HCL [Concomitant]
     Indication: MIGRAINE
     Dosage: 25 MG
     Route: 048
     Dates: start: 19800101
  6. LIPITOR [Concomitant]
     Indication: BLOOD CHOLESTEROL INCREASED
     Dosage: 20 MG
     Route: 048
  7. OMEPRAZOLE [Concomitant]
     Indication: DYSPEPSIA
     Dosage: 20 MG
     Route: 048
     Dates: start: 20101201
  8. FIBER CAPLET [Concomitant]
     Indication: CONSTIPATION
     Route: 048
     Dates: start: 19800101

REACTIONS (6)
  - DIARRHOEA [None]
  - VULVOVAGINAL BURNING SENSATION [None]
  - VULVOVAGINAL SWELLING [None]
  - COUGH [None]
  - PRURITUS GENERALISED [None]
  - VULVOVAGINAL DISCOMFORT [None]
